FAERS Safety Report 23173796 (Version 2)
Quarter: 2023Q4

REPORT INFORMATION
  Report Type: Spontaneous
  Country: FR (occurrence: FR)
  Receive Date: 20231111
  Receipt Date: 20231201
  Transmission Date: 20240110
  Serious: Yes (Hospitalization, Other)
  Sender: FDA-Public Use
  Company Number: FR-STERISCIENCE B.V.-2023-ST-002160

PATIENT
  Weight: 2.37 kg

DRUGS (10)
  1. MEROPENEM [Suspect]
     Active Substance: MEROPENEM
     Indication: Product used for unknown indication
     Dosage: THE PATIENT^S MOTHER DOSE WAS 2 GRAMS RECEIVED SINGLE DOSE
     Route: 064
  2. PIPERACILLIN SODIUM\TAZOBACTAM SODIUM [Suspect]
     Active Substance: PIPERACILLIN SODIUM\TAZOBACTAM SODIUM
     Indication: Product used for unknown indication
     Dosage: THE PATIENT^S MOTHER DOSE WAS 4 GRAMS THRICE DAILY
     Route: 064
  3. PANCREATIN [Suspect]
     Active Substance: PANCRELIPASE
     Indication: Product used for unknown indication
     Dosage: THE PATIENT^S MOTHER DOSE WAS DAILY
     Route: 064
  4. LEVOTHYROXINE SODIUM [Suspect]
     Active Substance: LEVOTHYROXINE SODIUM
     Indication: Product used for unknown indication
     Dosage: THE PATIENT^S MOTHER DOSE WAS DAILY
     Route: 064
  5. INSULIN NOS [Suspect]
     Active Substance: INSULIN NOS
     Indication: Product used for unknown indication
     Dosage: THE PATIENT^S MOTHER DOSE WAS DAILY
     Route: 064
  6. MONTELUKAST [Suspect]
     Active Substance: MONTELUKAST SODIUM
     Indication: Product used for unknown indication
     Dosage: THE PATIENT^S MOTHER DOSE WAS DAILY
     Route: 064
  7. AZITHROMYCIN [Suspect]
     Active Substance: AZITHROMYCIN
     Indication: Product used for unknown indication
     Dosage: THE PATIENT^S MOTHER DOSE WAS DAILY
     Route: 064
  8. LINEZOLID [Suspect]
     Active Substance: LINEZOLID
     Indication: Product used for unknown indication
     Dosage: THE PATIENT^S MOTHER DOSE WAS 1200 MG TWICE DAILY
     Route: 064
  9. TOBRAMYCIN [Suspect]
     Active Substance: TOBRAMYCIN
     Indication: Product used for unknown indication
     Dosage: THE PATIENT^S MOTHER DOSE WAS 500 MG ONCE DAILY
     Route: 064
  10. CIPROFLOXACIN [Suspect]
     Active Substance: CIPROFLOXACIN
     Indication: Product used for unknown indication
     Dosage: THE PATIENT^S MOTHER DOSE WAS 750 MG TWICE DAILY
     Route: 064

REACTIONS (4)
  - Neonatal respiratory distress syndrome [None]
  - Premature baby [Unknown]
  - Low birth weight baby [Unknown]
  - Foetal exposure during pregnancy [Unknown]
